FAERS Safety Report 25227121 (Version 2)
Quarter: 2025Q2

REPORT INFORMATION
  Report Type: Report from Study
  Country: US (occurrence: US)
  Receive Date: 20250422
  Receipt Date: 20250502
  Transmission Date: 20250717
  Serious: Yes (Life-Threatening, Hospitalization, Other)
  Sender: MYLAN
  Company Number: US-MYLANLABS-2025M1034670

PATIENT
  Sex: Female

DRUGS (12)
  1. LYRICA [Interacting]
     Active Substance: PREGABALIN
     Indication: Product used for unknown indication
  2. LYRICA [Interacting]
     Active Substance: PREGABALIN
     Route: 065
  3. LYRICA [Interacting]
     Active Substance: PREGABALIN
     Route: 065
  4. LYRICA [Interacting]
     Active Substance: PREGABALIN
  5. ELIQUIS [Interacting]
     Active Substance: APIXABAN
  6. ELIQUIS [Interacting]
     Active Substance: APIXABAN
     Route: 065
  7. ELIQUIS [Interacting]
     Active Substance: APIXABAN
     Route: 065
  8. ELIQUIS [Interacting]
     Active Substance: APIXABAN
  9. PREMARIN [Interacting]
     Active Substance: ESTROGENS, CONJUGATED
  10. PREMARIN [Interacting]
     Active Substance: ESTROGENS, CONJUGATED
     Route: 065
  11. PREMARIN [Interacting]
     Active Substance: ESTROGENS, CONJUGATED
     Route: 065
  12. PREMARIN [Interacting]
     Active Substance: ESTROGENS, CONJUGATED

REACTIONS (6)
  - Near death experience [Unknown]
  - Urinary tract infection [Unknown]
  - COVID-19 [Unknown]
  - Drug interaction [Unknown]
  - Drug hypersensitivity [Unknown]
  - Malaise [Unknown]

NARRATIVE: CASE EVENT DATE: 20180101
